FAERS Safety Report 15190349 (Version 1)
Quarter: 2018Q3

REPORT INFORMATION
  Report Type: Spontaneous
  Country: US (occurrence: US)
  Receive Date: 20180625
  Receipt Date: 20180625
  Transmission Date: 20181010
  Serious: Yes (Disabling)
  Sender: FDA-Public Use
  Company Number: None

PATIENT
  Age: 32 Year
  Sex: Female
  Weight: 45 kg

DRUGS (4)
  1. CLINAMYCIN [Suspect]
     Active Substance: CLINDAMYCIN
     Indication: CYSTITIS
     Dosage: ?          QUANTITY:1 CAPSULE(S);?
     Route: 048
  2. VSL#3 [Concomitant]
     Active Substance: PROBIOTICS NOS
  3. CEFDINIR. [Suspect]
     Active Substance: CEFDINIR
  4. CLINAMYCIN [Suspect]
     Active Substance: CLINDAMYCIN
     Indication: KIDNEY INFECTION
     Dosage: ?          QUANTITY:1 CAPSULE(S);?
     Route: 048

REACTIONS (1)
  - Clostridium test positive [None]

NARRATIVE: CASE EVENT DATE: 20180510
